FAERS Safety Report 16509353 (Version 1)
Quarter: 2019Q3

REPORT INFORMATION
  Report Type: Spontaneous
  Country: CA (occurrence: CA)
  Receive Date: 20190702
  Receipt Date: 20190702
  Transmission Date: 20191004
  Serious: Yes (Hospitalization, Other)
  Sender: FDA-Public Use
  Company Number: CA-TEVA-2019-CA-1069796

PATIENT
  Age: 77 Year
  Sex: Male
  Weight: 62 kg

DRUGS (15)
  1. FUROSEMIDE. [Suspect]
     Active Substance: FUROSEMIDE
     Route: 065
  2. MIRTAZAPINE. [Concomitant]
     Active Substance: MIRTAZAPINE
  3. SALBUTAMOL [Concomitant]
     Active Substance: ALBUTEROL
  4. VANCOMYCIN [Concomitant]
     Active Substance: VANCOMYCIN
  5. DAPTOMYCIN. [Suspect]
     Active Substance: DAPTOMYCIN
     Indication: ENTEROCOCCUS TEST POSITIVE
     Dosage: 700 MILLIGRAM DAILY;
     Route: 042
  6. HYDROMORPHONE [Concomitant]
     Active Substance: HYDROMORPHONE
  7. PANTOPRAZOLE [Concomitant]
     Active Substance: PANTOPRAZOLE
  8. TINZAPARIN [Concomitant]
     Active Substance: TINZAPARIN
  9. DAPTOMYCIN. [Suspect]
     Active Substance: DAPTOMYCIN
     Indication: AMPUTATION
  10. PREGABALIN. [Concomitant]
     Active Substance: PREGABALIN
  11. FLUCONAZOLE. [Suspect]
     Active Substance: FLUCONAZOLE
     Route: 065
  12. AMLODIPINE [Concomitant]
     Active Substance: AMLODIPINE BESYLATE
  13. METOPROLOL. [Concomitant]
     Active Substance: METOPROLOL
  14. ALLOPURINOL. [Suspect]
     Active Substance: ALLOPURINOL
  15. SPIRIVA [Concomitant]
     Active Substance: TIOTROPIUM BROMIDE MONOHYDRATE

REACTIONS (1)
  - Eosinophilia [Recovered/Resolved]
